FAERS Safety Report 25962875 (Version 2)
Quarter: 2025Q4

REPORT INFORMATION
  Report Type: Report from Study
  Country: GB (occurrence: GB)
  Receive Date: 20251027
  Receipt Date: 20251111
  Transmission Date: 20260118
  Serious: Yes (Hospitalization, Other)
  Sender: GLAXOSMITHKLINE
  Company Number: GB-GSK-GB2025EME138882

PATIENT

DRUGS (1)
  1. DOSTARLIMAB [Suspect]
     Active Substance: DOSTARLIMAB
     Indication: Endometrial neoplasm
     Dosage: UNK

REACTIONS (3)
  - Cognitive disorder [Recovering/Resolving]
  - Malaise [Recovering/Resolving]
  - Immune-mediated encephalitis [Recovering/Resolving]

NARRATIVE: CASE EVENT DATE: 20250924
